FAERS Safety Report 20008481 (Version 4)
Quarter: 2024Q2

REPORT INFORMATION
  Report Type: Spontaneous
  Country: IT (occurrence: IT)
  Receive Date: 20211029
  Receipt Date: 20240427
  Transmission Date: 20240717
  Serious: Yes (Other)
  Sender: FDA-Public Use
  Company Number: IT-CELLTRION INC.-2021IT014527

PATIENT

DRUGS (14)
  1. TRASTUZUMAB [Suspect]
     Active Substance: TRASTUZUMAB
     Indication: Breast cancer recurrent
     Dosage: UNK
     Route: 065
     Dates: start: 201803, end: 201901
  2. TRASTUZUMAB [Suspect]
     Active Substance: TRASTUZUMAB
     Indication: Breast cancer female
     Dosage: UNK
     Route: 065
     Dates: start: 201903
  3. TRASTUZUMAB [Suspect]
     Active Substance: TRASTUZUMAB
     Indication: Breast cancer
     Dosage: UNKNOWN. RE-STARTED
     Route: 065
  4. PACLITAXEL [Suspect]
     Active Substance: PACLITAXEL
     Indication: Breast cancer recurrent
     Dosage: UNK
     Route: 065
     Dates: start: 201803, end: 201901
  5. PACLITAXEL [Suspect]
     Active Substance: PACLITAXEL
     Indication: Breast cancer female
     Dosage: UNKNOWN. RE-STARTED
     Route: 065
  6. PACLITAXEL [Suspect]
     Active Substance: PACLITAXEL
     Indication: Breast cancer
  7. PERTUZUMAB [Suspect]
     Active Substance: PERTUZUMAB
     Indication: Breast cancer recurrent
     Dosage: UNK
     Route: 065
     Dates: start: 201803, end: 201901
  8. PERTUZUMAB [Suspect]
     Active Substance: PERTUZUMAB
     Indication: Breast cancer female
     Dosage: UNKNOWN. RE-STARTED
     Route: 065
  9. PERTUZUMAB [Suspect]
     Active Substance: PERTUZUMAB
     Indication: Breast cancer
  10. DOCETAXEL [Concomitant]
     Active Substance: DOCETAXEL\DOCETAXEL ANHYDROUS
     Indication: Breast cancer female
     Dosage: UNKNOWN
     Route: 065
  11. PERTUZUMAB [Concomitant]
     Active Substance: PERTUZUMAB
     Indication: Breast cancer recurrent
     Dosage: UNK
     Route: 065
     Dates: start: 201803, end: 201901
  12. PERTUZUMAB [Concomitant]
     Active Substance: PERTUZUMAB
     Dosage: UNK
     Route: 065
     Dates: start: 201903
  13. PACLITAXEL [Concomitant]
     Active Substance: PACLITAXEL
     Indication: Breast cancer recurrent
     Dosage: UNK
     Route: 065
     Dates: start: 201803, end: 201901
  14. PACLITAXEL [Concomitant]
     Active Substance: PACLITAXEL
     Dosage: UNK
     Route: 065
     Dates: start: 201903

REACTIONS (4)
  - Dyspnoea exertional [Recovered/Resolved]
  - Cardiotoxicity [Recovered/Resolved]
  - Ejection fraction decreased [Recovered/Resolved]
  - Left ventricular dysfunction [Recovered/Resolved]

NARRATIVE: CASE EVENT DATE: 20181201
